FAERS Safety Report 6547975-2 (Version None)
Quarter: 2010Q1

REPORT INFORMATION
  Report Type: 
  Country: None (occurrence: None)
  Receive Date: 20100124
  Receipt Date: 20091204
  Transmission Date: 20100710
  Serious: No
  Sender: FDA-Public Use
  Company Number: US-ALEXION-A200901045

PATIENT
  Sex: Female

DRUGS (26)
  1. SOLIRIS [Suspect]
     Indication: PAROXYSMAL NOCTURNAL HAEMOGLOBINURIA
     Dosage: 600 MG, QW
     Route: 042
     Dates: start: 20081217, end: 20090101
  2. SOLIRIS [Suspect]
     Dosage: 900 MG, Q2W
     Route: 042
     Dates: start: 20090116, end: 20090901
  3. ARIMIDEX [Concomitant]
     Indication: BREAST CANCER
  4. ASPIRIN [Concomitant]
     Dosage: 81 MG, QD
  5. MICARDIS [Concomitant]
     Indication: CARDIAC DISORDER
     Dosage: 40 MG, QD
     Route: 048
  6. DIGOXIN [Concomitant]
     Indication: CARDIAC DISORDER
     Dosage: 125 MG, QD
     Route: 048
  7. FOLIC ACID [Concomitant]
     Dosage: 1 MG, QD
  8. DILTIAZEM [Concomitant]
     Dosage: 240 MG, QD
     Route: 048
  9. SYNTHROID [Concomitant]
     Dosage: 125 MCG QD
     Route: 048
  10. PROZAC                             /00724401/ [Concomitant]
     Indication: DEPRESSION
     Dosage: 20 MG, QD
     Route: 048
  11. PROTONIX                           /01263201/ [Concomitant]
     Indication: GASTROINTESTINAL DISORDER
     Dosage: 40 MG, BID PRN
     Route: 048
  12. ACYCLOVIR [Concomitant]
     Indication: HERPES VIRUS INFECTION
     Dosage: 200 MG, PRN
     Route: 048
  13. ALDACTONE [Concomitant]
     Indication: OEDEMA
     Dosage: 50 MG, QD PRN
     Route: 048
  14. LASIX [Concomitant]
     Indication: OEDEMA
     Dosage: 40 MG, BID PRN
     Route: 048
  15. FLOVENT [Concomitant]
     Dosage: 110 MEQ, Q2H PRN
     Route: 055
  16. SINGULAIR [Concomitant]
     Indication: RESPIRATORY DISORDER
     Dosage: 10 MG, QD
     Route: 048
  17. IMDUR [Concomitant]
     Dosage: 30 MG, BID
     Route: 048
  18. K-DUR [Concomitant]
     Dosage: 10 MEQ, QD
     Route: 048
  19. PRODUR [Concomitant]
     Route: 055
  20. ATIVAN [Concomitant]
     Indication: ANXIETY
     Dosage: 0.5 MG, TID PRN
     Route: 048
  21. ALBUTEROL [Concomitant]
     Indication: RESPIRATORY DISORDER
     Dosage: Q4H PRN
     Route: 055
  22. PRIMATENE MIST [Concomitant]
     Indication: RESPIRATORY DISORDER
     Dosage: UNK
     Route: 055
  23. DUONEB [Concomitant]
     Dosage: 2.5 UNK, Q4H PRN
  24. DARVOCET-N 100 [Concomitant]
     Dosage: Q6H PRN
     Route: 048
  25. PREDNISONE [Concomitant]
     Indication: PAROXYSMAL NOCTURNAL HAEMOGLOBINURIA
     Dosage: 20 MG, QD
     Dates: start: 20091013, end: 20091001
  26. PREDNISONE [Concomitant]
     Dosage: 10 MG, QD
     Dates: start: 20091210

REACTIONS (6)
  - ASTHMA [None]
  - BLOOD LACTATE DEHYDROGENASE INCREASED [None]
  - CHROMATURIA [None]
  - FATIGUE [None]
  - HAEMATOCRIT DECREASED [None]
  - HAEMOGLOBIN DECREASED [None]
